FAERS Safety Report 25313766 (Version 1)
Quarter: 2025Q2

REPORT INFORMATION
  Report Type: Spontaneous
  Country: BR (occurrence: BR)
  Receive Date: 20250514
  Receipt Date: 20250514
  Transmission Date: 20250716
  Serious: Yes (Hospitalization)
  Sender: BIOGEN
  Company Number: BR-BIOGEN-2025BI01310359

PATIENT
  Sex: Female

DRUGS (2)
  1. TECFIDERA [Suspect]
     Active Substance: DIMETHYL FUMARATE
     Indication: Maternal exposure timing unspecified
     Route: 050
     Dates: start: 2019, end: 2021
  2. TECFIDERA [Suspect]
     Active Substance: DIMETHYL FUMARATE
     Route: 050
     Dates: start: 2019, end: 2021

REACTIONS (4)
  - Jaundice neonatal [Unknown]
  - Low birth weight baby [Unknown]
  - Exposure via breast milk [Recovered/Resolved]
  - Foetal exposure during pregnancy [Recovered/Resolved]
